FAERS Safety Report 10638066 (Version 3)
Quarter: 2015Q2

REPORT INFORMATION
  Report Type: Spontaneous
  Country: US (occurrence: US)
  Receive Date: 20141208
  Receipt Date: 20150421
  Transmission Date: 20150821
  Serious: Yes (Other)
  Sender: FDA-Public Use
  Company Number: US-CELGENE-USA-2014115704

PATIENT
  Sex: Female

DRUGS (5)
  1. OTEZLA [Suspect]
     Active Substance: APREMILAST
     Indication: PSORIATIC ARTHROPATHY
     Dosage: 30 MILLIGRAM
     Route: 048
     Dates: start: 20140906
  2. IBUPROFEN. [Concomitant]
     Active Substance: IBUPROFEN
     Route: 065
  3. TRAZODONE [Concomitant]
     Active Substance: TRAZODONE HYDROCHLORIDE
     Route: 065
  4. SOVALDI [Concomitant]
     Active Substance: SOFOSBUVIR
     Route: 065
  5. PEGASYS [Concomitant]
     Active Substance: PEGINTERFERON ALFA-2A
     Route: 065

REACTIONS (1)
  - Tendon pain [Recovering/Resolving]

NARRATIVE: CASE EVENT DATE: 2014
